FAERS Safety Report 7425380-4 (Version None)
Quarter: 2011Q2

REPORT INFORMATION
  Report Type: 
  Country: None (occurrence: None)
  Receive Date: 20110420
  Receipt Date: 20110411
  Transmission Date: 20111010
  Serious: Yes (Other)
  Sender: FDA-Public Use
  Company Number: US-ELI_LILLY_AND_COMPANY-US201104003587

PATIENT
  Sex: Female

DRUGS (2)
  1. ZYPREXA [Suspect]
     Dosage: 5 MG, EACH EVENING
     Dates: start: 20101104
  2. ALCOHOL [Concomitant]

REACTIONS (1)
  - ALCOHOL INDUCED PERSISTING DEMENTIA [None]
